FAERS Safety Report 6242386-1 (Version None)
Quarter: 2009Q2

REPORT INFORMATION
  Report Type: 
  Country: None (occurrence: None)
  Receive Date: 20090624
  Receipt Date: 20090506
  Transmission Date: 20091009
  Serious: Yes (Other)
  Sender: FDA-Public Use
  Company Number: NL-JNJFOC-20090607626

PATIENT
  Age: 12 Year
  Sex: Male

DRUGS (2)
  1. FENTANYL [Suspect]
     Indication: HEADACHE
     Dosage: 25 MG FENTANYL IN AN HOUR
     Route: 062
  2. ONDANSETRON [Suspect]
     Indication: NAUSEA

REACTIONS (4)
  - DRUG INEFFECTIVE [None]
  - FLUID INTAKE REDUCED [None]
  - NAUSEA [None]
  - URINARY RETENTION [None]
